FAERS Safety Report 6862911-7 (Version None)
Quarter: 2010Q3

REPORT INFORMATION
  Report Type: 
  Country: None (occurrence: None)
  Receive Date: 20100721
  Receipt Date: 20100714
  Transmission Date: 20110219
  Serious: Yes (Hospitalization, Disabling)
  Sender: FDA-Public Use
  Company Number: B0666387A

PATIENT
  Age: 34 Year
  Sex: Female

DRUGS (2)
  1. PAROXETINE HCL [Suspect]
     Dosage: 20MG PER DAY
     Route: 048
     Dates: start: 20050401, end: 20100501
  2. SEROQUEL [Suspect]
     Dosage: 12.5MG PER DAY
     Route: 048
     Dates: start: 20050401, end: 20100501

REACTIONS (1)
  - INTRACRANIAL ANEURYSM [None]
